FAERS Safety Report 16196258 (Version 1)
Quarter: 2019Q2

REPORT INFORMATION
  Report Type: Spontaneous
  Country: US (occurrence: US)
  Receive Date: 20190415
  Receipt Date: 20190415
  Transmission Date: 20190711
  Serious: No
  Sender: FDA-Public Use
  Company Number: US-BIOGEN-2019BI00721858

PATIENT
  Sex: Female

DRUGS (1)
  1. TECFIDERA [Suspect]
     Active Substance: DIMETHYL FUMARATE
     Indication: MULTIPLE SCLEROSIS
     Dosage: TAKE 1 CAPSULE BY MOUTH TWICE A DAY
     Route: 048

REACTIONS (8)
  - Fatigue [Unknown]
  - Vomiting [Unknown]
  - Hypoaesthesia [Unknown]
  - Hot flush [Unknown]
  - Paraesthesia [Unknown]
  - Pruritus [Unknown]
  - Abdominal discomfort [Unknown]
  - Dizziness [Unknown]
